FAERS Safety Report 24216658 (Version 1)
Quarter: 2024Q3

REPORT INFORMATION
  Report Type: Spontaneous
  Country: US (occurrence: US)
  Receive Date: 20240816
  Receipt Date: 20240816
  Transmission Date: 20241017
  Serious: Yes (Hospitalization)
  Sender: QUAGEN PHARMACEUTICALS
  Company Number: US-QUAGEN-2024QUALIT00238

PATIENT
  Age: 18 Month
  Sex: Male

DRUGS (1)
  1. ALBUTEROL SULFATE [Suspect]
     Active Substance: ALBUTEROL SULFATE
     Indication: Asthma
     Route: 065

REACTIONS (2)
  - Accelerated idioventricular rhythm [Recovered/Resolved]
  - Product use issue [Unknown]
